FAERS Safety Report 8244949 (Version 4)
Quarter: 2014Q1

REPORT INFORMATION
  Report Type: Report from Study
  Country: NL (occurrence: NL)
  Receive Date: 20111115
  Receipt Date: 20140227
  Transmission Date: 20141002
  Serious: Yes (Hospitalization, Other)
  Sender: FDA-Public Use
  Company Number: PHHO2011NL018427

PATIENT
  Sex: 0

DRUGS (8)
  1. CERTICAN [Suspect]
     Indication: RENAL TRANSPLANT
     Dosage: 150 MG, UNK
     Route: 048
     Dates: start: 20110808, end: 20110929
  2. CERTICAN [Suspect]
     Dosage: UNK
     Dates: start: 20111001
  3. MYFORTIC [Suspect]
     Indication: RENAL TRANSPLANT
     Dosage: 1440 MG, UNK
     Dates: start: 20110524
  4. PREDNISOLONE [Suspect]
     Indication: RENAL TRANSPLANT
     Dosage: 10 MG, UNK
     Dates: start: 20110524
  5. SELOKEEN [Concomitant]
     Indication: HYPERTENSION
     Dosage: 150 MG, UNK
  6. ASCAL [Concomitant]
     Indication: CORONARY ARTERY DISEASE
     Dosage: 100 MG, UNK
     Dates: end: 20110928
  7. NEXIUM [Concomitant]
     Indication: PROPHYLAXIS
     Dosage: 40 MG, UNK
     Dates: start: 20110524, end: 20110928
  8. SIMVASTATIN [Concomitant]
     Indication: PROPHYLAXIS
     Dosage: 20 MG, UNK
     Dates: start: 20110524, end: 20110928

REACTIONS (1)
  - Gastroenteritis viral [Recovered/Resolved]
